FAERS Safety Report 8842319 (Version 1)
Quarter: 2012Q4

REPORT INFORMATION
  Report Type: Report from Study
  Country: ES (occurrence: ES)
  Receive Date: 20121016
  Receipt Date: 20121016
  Transmission Date: 20130627
  Serious: Yes (Hospitalization)
  Sender: FDA-Public Use
  Company Number: ES-PFIZER INC-2012251738

PATIENT
  Age: 86 Year
  Sex: Female
  Weight: 69 kg

DRUGS (7)
  1. CARBOPLATIN [Suspect]
     Indication: BREAST CANCER
     Dosage: 6 AUC, total daily dose
     Dates: start: 20120201
  2. BLINDED THERAPY [Suspect]
     Indication: BREAST CANCER
     Dosage: UNK
     Route: 042
     Dates: start: 20120201
  3. TRASTUZUMAB [Suspect]
     Indication: BREAST CANCER
     Dosage: 8 mg/kg, every 3 weeks
     Route: 042
     Dates: start: 20120201
  4. DOCETAXEL [Suspect]
     Indication: BREAST CANCER
     Dosage: 75 mg/m2, total daily dose
     Dates: start: 20120201
  5. LORAZEPAM [Concomitant]
     Dosage: 1 mg, UNK
     Dates: start: 2011
  6. ENALAPRIL MALEATE [Concomitant]
     Dosage: 5 mg, UNK
     Dates: start: 2011
  7. NICARDIPINE HYDROCHLORIDE [Concomitant]
     Dosage: 80 mg, UNK
     Dates: start: 2009

REACTIONS (1)
  - Gastrointestinal toxicity [Recovered/Resolved]
